FAERS Safety Report 9300561 (Version 3)
Quarter: 2013Q2

REPORT INFORMATION
  Report Type: Spontaneous
  Country: JP (occurrence: JP)
  Receive Date: 20130521
  Receipt Date: 20130613
  Transmission Date: 20140414
  Serious: Yes (Other)
  Sender: FDA-Public Use
  Company Number: JP-PFIZER INC-2013155367

PATIENT
  Age: 72 Year
  Sex: Female

DRUGS (13)
  1. CELECOX [Suspect]
     Indication: ASTHMA
     Dosage: 100 MG, 2X/DAY
     Route: 048
     Dates: start: 20130507, end: 20130507
  2. ADOAIR [Concomitant]
     Dosage: UNK
     Route: 055
  3. BLOPRESS [Concomitant]
     Dosage: UNK
  4. AMLODIN [Concomitant]
     Dosage: UNK
  5. ACTOS [Concomitant]
     Dosage: UNK
  6. AMARYL [Concomitant]
     Dosage: UNK
  7. BASEN [Concomitant]
     Dosage: UNK
  8. CRESTOR [Concomitant]
     Dosage: UNK
  9. HALCION [Concomitant]
     Dosage: UNK
  10. EDIROL [Concomitant]
     Dosage: UNK
  11. AROMASIN [Concomitant]
     Dosage: UNK
  12. XYLOCAINE [Concomitant]
     Indication: ANAESTHESIA
     Dosage: UNK
     Dates: start: 20130507, end: 20130517
  13. RINDERON [Concomitant]
     Indication: ANAESTHESIA
     Dosage: UNK
     Dates: start: 20130507, end: 20130517

REACTIONS (2)
  - Off label use [Unknown]
  - Analgesic asthma syndrome [Recovered/Resolved]
